FAERS Safety Report 4495865-1 (Version None)
Quarter: 2004Q4

REPORT INFORMATION
  Report Type: 
  Country: None (occurrence: None)
  Receive Date: 20041108
  Receipt Date: 20041019
  Transmission Date: 20050328
  Serious: Yes (Death)
  Sender: FDA-Public Use
  Company Number: JP-BRISTOL-MYERS SQUIBB COMPANY-12735601

PATIENT
  Age: 75 Year
  Sex: Female

DRUGS (7)
  1. TAXOL [Suspect]
     Indication: BREAST CANCER
     Dosage: THERAPY DATES: 06-MAY TO 12-AUG-2004
     Route: 041
     Dates: start: 20040812, end: 20040812
  2. DEPAS [Concomitant]
     Route: 048
     Dates: end: 20040817
  3. FOIPAN [Concomitant]
     Route: 048
     Dates: end: 20040817
  4. PYRIDOXAL PHOSPHATE [Concomitant]
     Route: 048
     Dates: end: 20040817
  5. LOXONIN [Concomitant]
     Route: 048
     Dates: end: 20040817
  6. GASTER D [Concomitant]
     Route: 048
     Dates: end: 20040817
  7. NORVASC [Concomitant]
     Route: 048
     Dates: end: 20040817

REACTIONS (6)
  - BLOOD PRESSURE DECREASED [None]
  - EOSINOPHIL PERCENTAGE INCREASED [None]
  - INTERSTITIAL LUNG DISEASE [None]
  - LYMPHOCYTE PERCENTAGE INCREASED [None]
  - NEUTROPHIL PERCENTAGE DECREASED [None]
  - OXYGEN SATURATION DECREASED [None]
